FAERS Safety Report 5416634-1 (Version None)
Quarter: 2007Q3

REPORT INFORMATION
  Report Type: 
  Country: None (occurrence: None)
  Receive Date: 20070814
  Receipt Date: 20070802
  Transmission Date: 20080115
  Serious: Yes (Other)
  Sender: FDA-Public Use
  Company Number: 236434K07USA

PATIENT
  Age: 26 Year
  Sex: Female

DRUGS (4)
  1. REBIF [Suspect]
     Indication: MULTIPLE SCLEROSIS
     Dosage: SEE IMAGE
     Route: 042
     Dates: start: 20030101, end: 20060505
  2. REBIF [Suspect]
     Indication: MULTIPLE SCLEROSIS
     Dosage: SEE IMAGE
     Route: 042
     Dates: start: 20061224, end: 20061231
  3. REBIF [Suspect]
     Indication: MULTIPLE SCLEROSIS
     Dosage: SEE IMAGE
     Route: 042
     Dates: start: 20070101, end: 20070301
  4. REBIF [Suspect]
     Indication: MULTIPLE SCLEROSIS
     Dosage: SEE IMAGE
     Route: 042
     Dates: start: 20070801

REACTIONS (4)
  - ABORTION SPONTANEOUS [None]
  - CAESAREAN SECTION [None]
  - DRUG EXPOSURE DURING PREGNANCY [None]
  - PREGNANCY [None]
